FAERS Safety Report 10145985 (Version 1)
Quarter: 2014Q2

REPORT INFORMATION
  Report Type: Report from Study
  Country: AU (occurrence: AU)
  Receive Date: 20140501
  Receipt Date: 20140501
  Transmission Date: 20141212
  Serious: Yes (Other)
  Sender: FDA-Public Use
  Company Number: PHHY2014AU052458

PATIENT
  Age: 85 Year
  Sex: Female

DRUGS (1)
  1. ACLASTA [Suspect]
     Dosage: 5 MG, UNK
     Route: 042
     Dates: start: 20121213

REACTIONS (6)
  - Fall [Recovered/Resolved]
  - Pelvic fracture [Recovered/Resolved]
  - Pubis fracture [Recovered/Resolved]
  - Rib fracture [Recovered/Resolved]
  - Intervertebral disc protrusion [Recovered/Resolved]
  - Abdominal discomfort [Recovered/Resolved]
